FAERS Safety Report 4999544-3 (Version None)
Quarter: 2006Q2

REPORT INFORMATION
  Report Type: 
  Country: None (occurrence: None)
  Receive Date: 20060511
  Receipt Date: 20060221
  Transmission Date: 20061013
  Serious: Yes (Hospitalization)
  Sender: FDA-Public Use
  Company Number: US-MERCK-0602USA05275

PATIENT
  Age: 48 Year
  Sex: Male
  Weight: 109 kg

DRUGS (10)
  1. VIOXX [Suspect]
     Indication: BACK PAIN
     Route: 048
     Dates: start: 20010223
  2. LANTUS [Concomitant]
     Route: 065
  3. AMITRIPTYLINE PAMOATE [Concomitant]
     Route: 065
  4. ASPIRIN [Concomitant]
     Route: 048
  5. PEPCID [Concomitant]
     Route: 048
  6. XANAX [Concomitant]
     Route: 048
  7. GLUCOTROL XL [Concomitant]
     Route: 048
  8. CYCLOBENZAPRINE HYDROCHLORIDE [Concomitant]
     Route: 048
  9. GLUCOPHAGE [Concomitant]
     Route: 065
  10. ACTOS [Concomitant]
     Route: 065

REACTIONS (10)
  - ANXIETY [None]
  - CARDIAC ARREST [None]
  - CIRCULATORY COLLAPSE [None]
  - CONSTIPATION [None]
  - CORONARY ARTERY DISEASE [None]
  - GROIN ABSCESS [None]
  - HYPERKALAEMIA [None]
  - HYPONATRAEMIA [None]
  - MYOCARDIAL INFARCTION [None]
  - UPPER RESPIRATORY TRACT INFECTION [None]
